FAERS Safety Report 9122741 (Version 2)
Quarter: 2013Q2

REPORT INFORMATION
  Report Type: Spontaneous
  Country: FR (occurrence: FR)
  Receive Date: 20130115
  Receipt Date: 20130529
  Transmission Date: 20140414
  Serious: Yes (Hospitalization)
  Sender: FDA-Public Use
  Company Number: FR-ROCHE-1179436

PATIENT
  Age: 29 Year
  Sex: Male

DRUGS (8)
  1. VALIUM [Suspect]
     Indication: PRODUCT USED FOR UNKNOWN INDICATION
     Route: 048
  2. VALIUM [Suspect]
     Route: 030
  3. ABILIFY [Suspect]
     Indication: PRODUCT USED FOR UNKNOWN INDICATION
     Route: 048
     Dates: end: 20121204
  4. HALDOL DECANOAS [Suspect]
     Indication: PRODUCT USED FOR UNKNOWN INDICATION
     Route: 030
  5. HALDOL DECANOAS [Suspect]
     Route: 030
     Dates: start: 20121228
  6. LEPTICUR [Suspect]
     Indication: PRODUCT USED FOR UNKNOWN INDICATION
     Route: 048
  7. DEPAKOTE [Suspect]
     Indication: PRODUCT USED FOR UNKNOWN INDICATION
     Route: 048
     Dates: start: 20121204
  8. TERCIAN [Concomitant]

REACTIONS (2)
  - Pulmonary embolism [Recovered/Resolved]
  - Deep vein thrombosis [Recovered/Resolved]
